FAERS Safety Report 21977632 (Version 3)
Quarter: 2023Q2

REPORT INFORMATION
  Report Type: Spontaneous
  Country: US (occurrence: US)
  Receive Date: 20230210
  Receipt Date: 20230503
  Transmission Date: 20230722
  Serious: Yes (Hospitalization)
  Sender: FDA-Public Use
  Company Number: US-BIOVITRUM-2023US01081

PATIENT
  Age: 2 Month
  Sex: Female
  Weight: 4 kg

DRUGS (20)
  1. SYNAGIS [Suspect]
     Active Substance: PALIVIZUMAB
     Indication: Atrioventricular septal defect
     Dosage: MONTHLY
     Route: 030
     Dates: start: 20221107
  2. SYNAGIS [Suspect]
     Active Substance: PALIVIZUMAB
     Indication: Patent ductus arteriosus
     Route: 030
     Dates: start: 20221207
  3. SYNAGIS [Suspect]
     Active Substance: PALIVIZUMAB
     Indication: Aorta hypoplasia
     Route: 030
     Dates: start: 20230107
  4. VITAMIN D3 [Concomitant]
     Active Substance: CHOLECALCIFEROL
     Indication: Product used for unknown indication
     Dosage: 10(400)/ML DROPS
  5. LASIX [Concomitant]
     Active Substance: FUROSEMIDE
     Indication: Product used for unknown indication
     Dosage: 10 MG/ML
     Dates: start: 20230118, end: 20230119
  6. LASIX [Concomitant]
     Active Substance: FUROSEMIDE
     Dosage: 10 MG/ML.
     Dates: start: 20230202
  7. LASIX [Concomitant]
     Active Substance: FUROSEMIDE
     Dosage: 10 MG/ML.
     Dates: start: 20230125, end: 20230202
  8. ALDACTONE [Concomitant]
     Active Substance: SPIRONOLACTONE
     Indication: Product used for unknown indication
  9. CAPOTEN [Concomitant]
     Active Substance: CAPTOPRIL
     Indication: Product used for unknown indication
  10. bosentan (TRACLEER) [Concomitant]
     Indication: Product used for unknown indication
     Dosage: 4 MG BY MISCELLANEOUS ROUTE 2 TIMES A DAY (PLACE ONE HALF TABLET IN NASOGASTRIC TUBE  EVERY 12 HOURS
  11. Captopril (CAPOTEN) [Concomitant]
     Indication: Product used for unknown indication
     Dosage: 1 MG/ML ORAL SUSPENSION
  12. CHOLECALCIFEROL [Concomitant]
     Active Substance: CHOLECALCIFEROL
     Indication: Product used for unknown indication
     Dosage: 10 MCG/DROP
  13. HYDROCHLOROTHIAZIDE [Concomitant]
     Active Substance: HYDROCHLOROTHIAZIDE
     Indication: Product used for unknown indication
     Dosage: 5 MG/ML
  14. SILDENAFIL [Concomitant]
     Active Substance: SILDENAFIL
     Indication: Pulmonary hypertension
  15. SODIUM CHLORIDE [Concomitant]
     Active Substance: SODIUM CHLORIDE
     Indication: Product used for unknown indication
     Dosage: 6.4 MEQ, TWICE A DAY
  16. spironolactone (CAROSPIR) [Concomitant]
     Indication: Product used for unknown indication
     Dosage: TWICE A DAY
  17. chlorothiazide (DIURIL) [Concomitant]
     Indication: Product used for unknown indication
     Dosage: 50 MG/ML, TWICE A DAY
  18. ACETAMINOPHEN [Concomitant]
     Active Substance: ACETAMINOPHEN
     Indication: Product used for unknown indication
     Dosage: 160 MG/5ML SOLUTION
  19. POTASSIUM CHLORIDE [Concomitant]
     Active Substance: POTASSIUM CHLORIDE
     Indication: Product used for unknown indication
  20. FUROSEMIDE [Concomitant]
     Active Substance: FUROSEMIDE
     Indication: Product used for unknown indication

REACTIONS (7)
  - Nasopharyngitis [Unknown]
  - Failure to thrive [Unknown]
  - Hypokalaemia [Unknown]
  - Weight gain poor [Unknown]
  - Post procedural infection [Unknown]
  - Brain natriuretic peptide increased [Unknown]
  - Viral infection [Unknown]

NARRATIVE: CASE EVENT DATE: 20221117
